FAERS Safety Report 12933575 (Version 5)
Quarter: 2017Q1

REPORT INFORMATION
  Report Type: Spontaneous
  Country: US (occurrence: US)
  Receive Date: 20161111
  Receipt Date: 20170223
  Transmission Date: 20170428
  Serious: No
  Sender: FDA-Public Use
  Company Number: US-ACTELION-A-US2015-126767

PATIENT
  Age: 72 Year
  Sex: Male
  Weight: 70.3 kg

DRUGS (5)
  1. ORENITRAM [Concomitant]
     Active Substance: TREPROSTINIL
  2. OPSUMIT [Suspect]
     Active Substance: MACITENTAN
     Indication: PULMONARY HYPERTENSION
     Dosage: 10 MG, QD
     Route: 048
     Dates: start: 20150727
  3. ADCIRCA [Concomitant]
     Active Substance: TADALAFIL
  4. OPSUMIT [Suspect]
     Active Substance: MACITENTAN
     Dosage: 10 MG, QD
     Route: 048
     Dates: start: 20150812
  5. REMODULIN [Concomitant]
     Active Substance: TREPROSTINIL
     Dosage: UNK

REACTIONS (11)
  - Activities of daily living impaired [Unknown]
  - Abdominal distension [Unknown]
  - Device dislocation [Unknown]
  - Pain in extremity [Unknown]
  - Catheter site pain [Unknown]
  - Peripheral swelling [Unknown]
  - Flatulence [Unknown]
  - Gait disturbance [Unknown]
  - Diarrhoea [Unknown]
  - Fluid retention [Unknown]
  - Insomnia [Unknown]

NARRATIVE: CASE EVENT DATE: 20161002
